FAERS Safety Report 7798565-5 (Version None)
Quarter: 2011Q4

REPORT INFORMATION
  Report Type: 
  Country: None (occurrence: None)
  Receive Date: 20111005
  Receipt Date: 20110926
  Transmission Date: 20120403
  Serious: Yes (Hospitalization, Other)
  Sender: FDA-Public Use
  Company Number: US-MERCK-1107USA03267

PATIENT
  Age: 57 Year
  Sex: Female
  Weight: 98 kg

DRUGS (10)
  1. ALENDRONATE SODIUM [Suspect]
     Indication: OSTEOPENIA
     Route: 048
     Dates: start: 20081001, end: 20100118
  2. FOSAMAX [Suspect]
     Route: 048
     Dates: start: 20030804, end: 20030904
  3. ADVAIR DISKUS 100/50 [Suspect]
     Route: 065
     Dates: start: 20000101
  4. FOSAMAX [Suspect]
     Indication: OSTEOPOROSIS
     Route: 048
     Dates: start: 20051025, end: 20100201
  5. SINGULAIR [Concomitant]
     Route: 065
     Dates: start: 20000101
  6. FOSAMAX PLUS D [Suspect]
     Indication: OSTEOPENIA
     Route: 048
     Dates: start: 20080207, end: 20091019
  7. FOSAMAX [Suspect]
     Indication: OSTEOPENIA
     Route: 048
     Dates: start: 20051025, end: 20100201
  8. FOSAMAX [Suspect]
     Route: 048
     Dates: start: 20030804, end: 20030904
  9. NEXIUM [Concomitant]
     Route: 065
     Dates: start: 19860101, end: 20040101
  10. CORTICOSTEROIDS (UNSPECIFIED) [Suspect]
     Route: 065
     Dates: start: 19900101, end: 20100101

REACTIONS (56)
  - OSTEITIS [None]
  - SLEEP DISORDER [None]
  - RESTLESS LEGS SYNDROME [None]
  - HYPERTENSION [None]
  - PROCEDURAL HYPOTENSION [None]
  - SYNOVIAL CYST [None]
  - PLANTAR FASCIITIS [None]
  - VITAMIN D DECREASED [None]
  - RHEUMATOID ARTHRITIS [None]
  - KYPHOSCOLIOSIS [None]
  - FEMUR FRACTURE [None]
  - ANAEMIA POSTOPERATIVE [None]
  - FALL [None]
  - DRUG HYPERSENSITIVITY [None]
  - FOOT FRACTURE [None]
  - FIBROMUSCULAR DYSPLASIA [None]
  - DYSLIPIDAEMIA [None]
  - SYNOVITIS [None]
  - SINUS DISORDER [None]
  - OSTEOARTHRITIS [None]
  - DIVERTICULUM INTESTINAL [None]
  - OSTEONECROSIS [None]
  - CONSTIPATION [None]
  - BLOOD PRESSURE INCREASED [None]
  - FIBROCYSTIC BREAST DISEASE [None]
  - LIMB ASYMMETRY [None]
  - EXOSTOSIS [None]
  - CAROTID ARTERY STENOSIS [None]
  - FRACTURE NONUNION [None]
  - BRONCHITIS [None]
  - INFLUENZA [None]
  - MOUTH ULCERATION [None]
  - URINARY TRACT INFECTION [None]
  - ALOPECIA [None]
  - DEVICE FAILURE [None]
  - FIBROMYALGIA [None]
  - JOINT EFFUSION [None]
  - PALPITATIONS [None]
  - SYMPHYSIOLYSIS [None]
  - MUSCULOSKELETAL DISCOMFORT [None]
  - BURSITIS [None]
  - INTERVERTEBRAL DISC DEGENERATION [None]
  - HYPERCHOLESTEROLAEMIA [None]
  - MIGRAINE [None]
  - MENISCUS LESION [None]
  - SCIATICA [None]
  - LUMBAR SPINAL STENOSIS [None]
  - ASTHMA [None]
  - BALANCE DISORDER [None]
  - ONYCHOMYCOSIS [None]
  - BONE CYST [None]
  - SCOLIOSIS [None]
  - ARTHROPATHY [None]
  - HYPOTENSION [None]
  - HYPERLIPIDAEMIA [None]
  - CAROTID BRUIT [None]
